FAERS Safety Report 12453973 (Version 4)
Quarter: 2016Q3

REPORT INFORMATION
  Report Type: Report from Study
  Country: JP (occurrence: JP)
  Receive Date: 20160610
  Receipt Date: 20160923
  Transmission Date: 20161109
  Serious: Yes (Other)
  Sender: FDA-Public Use
  Company Number: JP-BRISTOL-MYERS SQUIBB COMPANY-BMS-2016-044985

PATIENT
  Age: 55 Year
  Sex: Male

DRUGS (5)
  1. NIVOLUMAB [Suspect]
     Active Substance: NIVOLUMAB
     Dosage: 3 MG/KG, UNK
     Route: 041
     Dates: start: 20160421, end: 20160421
  2. NIVOLUMAB [Suspect]
     Active Substance: NIVOLUMAB
     Dosage: 3 MG/KG, UNK
     Route: 041
     Dates: start: 20160725, end: 20160725
  3. NIVOLUMAB [Suspect]
     Active Substance: NIVOLUMAB
     Dosage: 3 MG/KG, UNK
     Route: 041
     Dates: start: 20160623, end: 20160623
  4. NIVOLUMAB [Suspect]
     Active Substance: NIVOLUMAB
     Dosage: 3 MG/KG, UNK
     Route: 041
     Dates: start: 20160523, end: 20160523
  5. NIVOLUMAB [Suspect]
     Active Substance: NIVOLUMAB
     Indication: NON-SMALL CELL LUNG CANCER
     Dosage: 3 MG/KG, UNK
     Route: 041
     Dates: start: 20160307, end: 20160307

REACTIONS (3)
  - Rheumatoid arthritis [Not Recovered/Not Resolved]
  - Malignant neoplasm progression [Unknown]
  - Inappropriate schedule of drug administration [Unknown]

NARRATIVE: CASE EVENT DATE: 20160401
